FAERS Safety Report 15832260 (Version 1)
Quarter: 2019Q1

REPORT INFORMATION
  Report Type: Spontaneous
  Country: US (occurrence: US)
  Receive Date: 20190115
  Receipt Date: 20190115
  Transmission Date: 20190417
  Serious: Yes (Life-Threatening, Hospitalization, Disabling, Other)
  Sender: FDA-Public Use
  Company Number: None

PATIENT
  Age: 42 Year
  Sex: Male
  Weight: 53.52 kg

DRUGS (1)
  1. XOFIGO [Suspect]
     Active Substance: RADIUM RA-223 DICHLORIDE
     Indication: PROSTATE CANCER METASTATIC
     Route: 040

REACTIONS (5)
  - Mental status changes [None]
  - Tumour lysis syndrome [None]
  - Renal failure [None]
  - Shock [None]
  - Respiratory failure [None]

NARRATIVE: CASE EVENT DATE: 20190107
